FAERS Safety Report 25870330 (Version 1)
Quarter: 2025Q4

REPORT INFORMATION
  Report Type: Spontaneous
  Country: US (occurrence: US)
  Receive Date: 20251001
  Receipt Date: 20251001
  Transmission Date: 20260117
  Serious: No
  Sender: PFIZER
  Company Number: US-PFIZER INC-202500193093

PATIENT
  Age: 69 Year
  Sex: Female

DRUGS (4)
  1. XELJANZ XR [Suspect]
     Active Substance: TOFACITINIB CITRATE
     Dosage: 11 MG
  2. PREDNISONE [Suspect]
     Active Substance: PREDNISONE
     Dosage: 15 MG (ONE WEEK)
  3. PREDNISONE [Suspect]
     Active Substance: PREDNISONE
     Dosage: 12.5 MG (ONE WEEK)
  4. PREDNISONE [Suspect]
     Active Substance: PREDNISONE
     Dosage: 10 MG (ONE WEEK)

REACTIONS (1)
  - Condition aggravated [Unknown]
